FAERS Safety Report 7653728-4 (Version None)
Quarter: 2011Q3

REPORT INFORMATION
  Report Type: 
  Country: None (occurrence: None)
  Receive Date: 20110803
  Receipt Date: 20110719
  Transmission Date: 20111222
  Serious: Yes (Hospitalization)
  Sender: FDA-Public Use
  Company Number: US-GLAXOSMITHKLINE-A0876386A

PATIENT
  Sex: Male
  Weight: 79.9 kg

DRUGS (11)
  1. AVANDIA [Suspect]
     Indication: DIABETES MELLITUS
     Dosage: 4MG UNKNOWN
     Route: 048
     Dates: start: 20020101, end: 20070101
  2. ASPIRIN [Concomitant]
  3. AMBIEN [Concomitant]
  4. NEXIUM [Concomitant]
  5. ATENOLOL [Concomitant]
  6. ZOCOR [Concomitant]
  7. TENORMIN [Concomitant]
  8. ZYLOPRIM [Concomitant]
  9. TRENTAL [Concomitant]
  10. LASIX [Concomitant]
  11. POTASSIUM [Concomitant]

REACTIONS (7)
  - ATRIAL FIBRILLATION [None]
  - MYOCARDIAL ISCHAEMIA [None]
  - MYOCARDIAL INFARCTION [None]
  - CORONARY ARTERY BYPASS [None]
  - SINUS ARRHYTHMIA [None]
  - VENTRICULAR TACHYCARDIA [None]
  - IMPLANTABLE DEFIBRILLATOR INSERTION [None]
